FAERS Safety Report 9191340 (Version 1)
Quarter: 2013Q1

REPORT INFORMATION
  Report Type: Spontaneous
  Country: US (occurrence: US)
  Receive Date: 20130326
  Receipt Date: 20130326
  Transmission Date: 20140127
  Serious: Yes (Other)
  Sender: FDA-Public Use
  Company Number: US-BAYER-2013-036778

PATIENT
  Sex: 0

DRUGS (4)
  1. ALEVE [Suspect]
  2. BAYER GENUINE ASPIRIN ORIGINAL STRENGTH [Suspect]
  3. TYLENOL [Suspect]
  4. MOTRIN [Suspect]

REACTIONS (2)
  - Overdose [None]
  - Haemorrhage [None]
